FAERS Safety Report 10938879 (Version 1)
Quarter: 2015Q1

REPORT INFORMATION
  Report Type: Spontaneous
  Country: FR (occurrence: FR)
  Receive Date: 20150321
  Receipt Date: 20150321
  Transmission Date: 20150721
  Serious: Yes (Hospitalization, Other)
  Sender: FDA-Public Use
  Company Number: FR-009507513-1501FRA008120

PATIENT
  Age: 32 Year
  Sex: Female
  Weight: 49 kg

DRUGS (1)
  1. ETONOGESTREL IMPLANT- UNKNOWN [Suspect]
     Active Substance: ETONOGESTREL
     Dosage: IN THE LEFT ARM
     Route: 059
     Dates: start: 2009

REACTIONS (4)
  - Surgery [Unknown]
  - Incorrect drug administration duration [Unknown]
  - Ectopic pregnancy [Recovered/Resolved]
  - Unintended pregnancy [Recovered/Resolved]

NARRATIVE: CASE EVENT DATE: 2012
